FAERS Safety Report 9337520 (Version 1)
Quarter: 2013Q2

REPORT INFORMATION
  Report Type: Spontaneous
  Country: US (occurrence: US)
  Receive Date: 20130607
  Receipt Date: 20130607
  Transmission Date: 20140414
  Serious: Yes (Death)
  Sender: FDA-Public Use
  Company Number: CHPA2013US009475

PATIENT
  Sex: Male

DRUGS (1)
  1. MAALOX ANTACID/ANTIGAS MS LIQ COOL MINT [Suspect]
     Dosage: UNK, UNK
     Route: 048

REACTIONS (1)
  - Death [Fatal]
